FAERS Safety Report 9587311 (Version 1)
Quarter: 2013Q4

REPORT INFORMATION
  Report Type: Spontaneous
  Country: US (occurrence: US)
  Receive Date: 20131003
  Receipt Date: 20131003
  Transmission Date: 20140711
  Serious: Yes (Other)
  Sender: FDA-Public Use
  Company Number: US-PFIZER INC-2013282057

PATIENT
  Age: 61 Year
  Sex: Female
  Weight: 72.6 kg

DRUGS (4)
  1. DILANTIN [Suspect]
     Indication: EPILEPSY
     Dosage: 250 MG, 1X/DAY
     Dates: start: 19650731, end: 1967
  2. DILANTIN [Suspect]
     Dosage: 250 MG, 1X/DAY
     Dates: start: 1982
  3. DILANTIN [Suspect]
     Indication: EPILEPSY
     Dosage: UNK
  4. PHENYTOIN [Suspect]
     Indication: EPILEPSY
     Dosage: UNK

REACTIONS (5)
  - Rib fracture [Unknown]
  - Wrist fracture [Unknown]
  - Ankle fracture [Unknown]
  - Humerus fracture [Unknown]
  - Vitamin D decreased [Unknown]
